FAERS Safety Report 5396867-3 (Version None)
Quarter: 2007Q3

REPORT INFORMATION
  Report Type: 
  Country: None (occurrence: None)
  Receive Date: 20070723
  Receipt Date: 20070711
  Transmission Date: 20080115
  Serious: No
  Sender: FDA-Public Use
  Company Number: 26820

PATIENT
  Sex: Female

DRUGS (3)
  1. NIASPAN [Suspect]
     Dosage: 1000 MG ONCE PO
     Route: 048
     Dates: start: 20070502, end: 20070502
  2. CALCIUM CHLORIDE [Concomitant]
  3. LOVASTATIN [Concomitant]

REACTIONS (5)
  - ACCIDENTAL EXPOSURE [None]
  - ERYTHEMA [None]
  - FLUSHING [None]
  - FORMICATION [None]
  - PRURITUS [None]
